FAERS Safety Report 15405145 (Version 1)
Quarter: 2018Q3

REPORT INFORMATION
  Report Type: Spontaneous
  Country: BR (occurrence: BR)
  Receive Date: 20180920
  Receipt Date: 20180920
  Transmission Date: 20181010
  Serious: Yes (Hospitalization, Other)
  Sender: FDA-Public Use
  Company Number: BR-ABBVIE-18K-020-2487331-00

PATIENT
  Age: 53 Year
  Sex: Male
  Weight: 67 kg

DRUGS (4)
  1. HUMIRA [Suspect]
     Active Substance: ADALIMUMAB
     Route: 058
  2. TAMIRAM [Concomitant]
     Active Substance: LEVOFLOXACIN
     Indication: PRODUCT USED FOR UNKNOWN INDICATION
  3. HUMIRA [Suspect]
     Active Substance: ADALIMUMAB
     Indication: PSORIASIS
     Route: 058
  4. HUMIRA [Suspect]
     Active Substance: ADALIMUMAB
     Indication: PSORIATIC ARTHROPATHY
     Route: 058
     Dates: start: 201011

REACTIONS (32)
  - Gait disturbance [Not Recovered/Not Resolved]
  - Abdominal distension [Recovering/Resolving]
  - Blood triglycerides increased [Not Recovered/Not Resolved]
  - Abdominal distension [Recovered/Resolved]
  - Incorrect dose administered [Unknown]
  - Hepatitis [Recovered/Resolved]
  - Tuberculosis [Recovered/Resolved]
  - Onychomadesis [Recovered/Resolved]
  - Drug ineffective [Unknown]
  - Psoriatic arthropathy [Unknown]
  - Blood cholesterol increased [Not Recovered/Not Resolved]
  - Injection site haemorrhage [Recovered/Resolved]
  - Injection site pain [Recovered/Resolved]
  - Peripheral swelling [Unknown]
  - Arthralgia [Unknown]
  - Pulmonary mass [Not Recovered/Not Resolved]
  - Psoriasis [Recovered/Resolved]
  - Needle issue [Unknown]
  - Wrong technique in product usage process [Unknown]
  - Chromaturia [Recovered/Resolved]
  - Ocular icterus [Recovered/Resolved]
  - Injection site discolouration [Recovered/Resolved]
  - Fall [Unknown]
  - Diabetes mellitus [Recovering/Resolving]
  - Platelet count increased [Not Recovered/Not Resolved]
  - Injection site mass [Recovered/Resolved]
  - Blood glucose increased [Not Recovered/Not Resolved]
  - Onychomycosis [Recovered/Resolved]
  - Musculoskeletal pain [Recovering/Resolving]
  - Liver disorder [Unknown]
  - Fatigue [Recovered/Resolved]
  - Psoriatic arthropathy [Recovered/Resolved]

NARRATIVE: CASE EVENT DATE: 2010
